FAERS Safety Report 7966553-1 (Version None)
Quarter: 2011Q4

REPORT INFORMATION
  Report Type: 
  Country: None (occurrence: None)
  Receive Date: 20111208
  Receipt Date: 20111128
  Transmission Date: 20120403
  Serious: Yes (Hospitalization, Other)
  Sender: FDA-Public Use
  Company Number: US-ELI_LILLY_AND_COMPANY-US201111009046

PATIENT
  Sex: Female
  Weight: 60.317 kg

DRUGS (18)
  1. CRESTOR [Concomitant]
     Indication: BLOOD CHOLESTEROL ABNORMAL
  2. DIOVAN [Concomitant]
     Indication: HYPERTENSION
  3. SYNTHROID [Concomitant]
  4. ASPIRIN [Concomitant]
     Indication: CARDIAC DISORDER
  5. FOLIC ACID [Concomitant]
     Indication: ANAEMIA
  6. METHOTREXATE [Concomitant]
     Indication: RHEUMATOID ARTHRITIS
  7. ATENOLOL [Concomitant]
     Indication: HYPERTENSION
  8. FORTEO [Suspect]
     Indication: OSTEOPOROSIS
     Dosage: 20 UG, QD
  9. EXTRA STRENGTH TYLENOL [Concomitant]
     Indication: MUSCULOSKELETAL STIFFNESS
  10. ASPIRIN [Concomitant]
  11. CALCIUM D-500 [Concomitant]
  12. LEVOTHYROXINE SODIUM [Concomitant]
  13. LEFLUNOMIDE [Concomitant]
     Indication: RHEUMATOID ARTHRITIS
  14. CALCIUM 600 PLUS VITAMIN D [Concomitant]
  15. ARAVA [Concomitant]
     Indication: RHEUMATOID ARTHRITIS
  16. CALCIUM [Concomitant]
     Indication: OSTEOPOROSIS
  17. VITAMIN D [Concomitant]
  18. VITAMIN D [Concomitant]

REACTIONS (7)
  - OROPHARYNGEAL PAIN [None]
  - MALAISE [None]
  - CORONARY ARTERY OCCLUSION [None]
  - COUGH [None]
  - NASAL CONGESTION [None]
  - RETCHING [None]
  - NASOPHARYNGITIS [None]
